FAERS Safety Report 7681810-4 (Version None)
Quarter: 2011Q3

REPORT INFORMATION
  Report Type: 
  Country: None (occurrence: None)
  Receive Date: 20110812
  Receipt Date: 20110803
  Transmission Date: 20111222
  Serious: Yes (Hospitalization)
  Sender: FDA-Public Use
  Company Number: US-ASTRAZENECA-2011SE46802

PATIENT
  Age: 64 Year
  Sex: Female

DRUGS (2)
  1. SYMBICORT [Suspect]
     Dosage: UNKNOWN FREQUENCY
     Route: 055
  2. VITAMIN TAB [Concomitant]

REACTIONS (5)
  - SHOCK [None]
  - FEELING ABNORMAL [None]
  - MENTAL IMPAIRMENT [None]
  - FATIGUE [None]
  - ANAEMIA [None]
